FAERS Safety Report 11229502 (Version 2)
Quarter: 2015Q3

REPORT INFORMATION
  Report Type: Spontaneous
  Country: PL (occurrence: PL)
  Receive Date: 20150630
  Receipt Date: 20150710
  Transmission Date: 20151125
  Serious: Yes (Hospitalization, Other)
  Sender: FDA-Public Use
  Company Number: PHHY2015PL075491

PATIENT
  Age: 52 Year
  Sex: Female

DRUGS (3)
  1. CLINDAMYCIN [Suspect]
     Active Substance: CLINDAMYCIN\CLINDAMYCIN PHOSPHATE
     Indication: PRODUCT USED FOR UNKNOWN INDICATION
  2. CEFOTAXIME [Suspect]
     Active Substance: CEFOTAXIME SODIUM
     Indication: PRODUCT USED FOR UNKNOWN INDICATION
     Route: 065
  3. CIPROFLOXACIN. [Suspect]
     Active Substance: CIPROFLOXACIN
     Indication: PRODUCT USED FOR UNKNOWN INDICATION
     Route: 065

REACTIONS (9)
  - Cardiovascular insufficiency [Unknown]
  - Blood pressure fluctuation [Unknown]
  - Dyspnoea [Recovered/Resolved]
  - Exercise tolerance decreased [Unknown]
  - General physical health deterioration [Recovered/Resolved]
  - Oedema peripheral [Unknown]
  - Sepsis [Unknown]
  - Cardiac tamponade [Unknown]
  - Pericarditis constrictive [Unknown]
